FAERS Safety Report 9780254 (Version 2)
Quarter: 2014Q2

REPORT INFORMATION
  Report Type: Spontaneous
  Country: JP (occurrence: JP)
  Receive Date: 20131223
  Receipt Date: 20140410
  Transmission Date: 20141212
  Serious: Yes (Death)
  Sender: FDA-Public Use
  Company Number: JP-ROCHE-1323657

PATIENT
  Age: 47 Year
  Sex: Female
  Weight: 42 kg

DRUGS (7)
  1. AVASTIN [Suspect]
     Indication: GLIOBLASTOMA
     Route: 041
     Dates: start: 20130910, end: 20131212
  2. KEPPRA [Concomitant]
     Indication: GLIOBLASTOMA
     Route: 048
     Dates: start: 20130907, end: 20131212
  3. MAGMITT [Concomitant]
     Indication: GLIOBLASTOMA
     Route: 048
     Dates: end: 20131212
  4. TEGRETOL [Concomitant]
     Indication: GLIOBLASTOMA
     Route: 048
     Dates: end: 20131212
  5. SENNARIDE [Concomitant]
     Indication: GLIOBLASTOMA
     Route: 048
     Dates: end: 20131212
  6. GASTER D [Concomitant]
     Route: 048
     Dates: end: 20131212
  7. DECADRON [Concomitant]
     Indication: GLIOBLASTOMA
     Route: 048
     Dates: start: 20131022, end: 20131212

REACTIONS (2)
  - Glioblastoma [Fatal]
  - Purpura [Recovering/Resolving]
